FAERS Safety Report 9731477 (Version 2)
Quarter: 2013Q4

REPORT INFORMATION
  Report Type: Spontaneous
  Country: US (occurrence: US)
  Receive Date: 20131203
  Receipt Date: 20131210
  Transmission Date: 20140711
  Serious: Yes (Death, Other)
  Sender: FDA-Public Use
  Company Number: US-BAXTER-2013BAX046022

PATIENT
  Sex: Male

DRUGS (5)
  1. DIANEAL LOW CALCIUM [Suspect]
     Indication: RENAL FAILURE CHRONIC
     Route: 033
     Dates: start: 20130821, end: 20131118
  2. DIANEAL LOW CALCIUM [Suspect]
     Route: 033
     Dates: start: 20130821, end: 20131118
  3. DIANEAL LOW CALCIUM [Suspect]
     Indication: RENAL FAILURE CHRONIC
     Route: 033
     Dates: start: 20130821, end: 20131118
  4. DIANEAL LOW CALCIUM (ULTRABAG) [Suspect]
     Indication: RENAL FAILURE CHRONIC
     Route: 033
     Dates: start: 201012, end: 20131118
  5. DIANEAL LOW CALCIUM (ULTRABAG) [Suspect]
     Route: 033
     Dates: start: 20130821, end: 20131118

REACTIONS (5)
  - Renal failure [Fatal]
  - Cardiac disorder [Fatal]
  - Complications of transplanted kidney [Unknown]
  - Transplant failure [Unknown]
  - Fluid overload [Recovered/Resolved with Sequelae]
